FAERS Safety Report 9584576 (Version 1)
Quarter: 2013Q4

REPORT INFORMATION
  Report Type: Spontaneous
  Country: US (occurrence: US)
  Receive Date: 20131002
  Receipt Date: 20131002
  Transmission Date: 20140711
  Serious: No
  Sender: FDA-Public Use
  Company Number: US-AMGEN-USASP2013054230

PATIENT
  Age: 40 Year
  Sex: Female
  Weight: 61.22 kg

DRUGS (3)
  1. ENBREL [Suspect]
     Indication: RHEUMATOID ARTHRITIS
     Dosage: 50 MG, QWK
     Route: 058
     Dates: start: 20130430
  2. ARAVA [Concomitant]
     Dosage: UNK
  3. CLARITIN                           /00917501/ [Concomitant]
     Dosage: UNK

REACTIONS (1)
  - Injection site bruising [Unknown]
